FAERS Safety Report 7380580-7 (Version None)
Quarter: 2011Q1

REPORT INFORMATION
  Report Type: 
  Country: None (occurrence: None)
  Receive Date: 20110329
  Receipt Date: 20110323
  Transmission Date: 20110831
  Serious: Yes (Death)
  Sender: FDA-Public Use
  Company Number: JP-SANOFI-AVENTIS-2011SA017883

PATIENT
  Age: 83 Year
  Sex: Female

DRUGS (3)
  1. OXALIPLATIN [Suspect]
     Indication: LARGE INTESTINE CARCINOMA
     Dosage: ROUTE REPORTED AS DR, FORM: INFUSION
     Route: 040
     Dates: start: 20090201, end: 20090610
  2. CALCIUM LEVOFOLINATE [Concomitant]
     Indication: LARGE INTESTINE CARCINOMA
     Dosage: ROUTE DR, FORM: INFUSION
     Route: 040
     Dates: start: 20090201, end: 20090610
  3. FLUOROURACIL [Concomitant]
     Indication: LARGE INTESTINE CARCINOMA
     Dosage: ROUTE BIV/DR, FORM: INFUSION
     Route: 040
     Dates: start: 20090201, end: 20090610

REACTIONS (2)
  - NEUTROPHIL COUNT DECREASED [None]
  - INFUSION SITE INFECTION [None]
